FAERS Safety Report 19245822 (Version 2)
Quarter: 2022Q1

REPORT INFORMATION
  Report Type: Spontaneous
  Country: DE (occurrence: DE)
  Receive Date: 20210512
  Receipt Date: 20220331
  Transmission Date: 20220423
  Serious: Yes (Hospitalization)
  Sender: FDA-Public Use
  Company Number: DE-TEVA-2021-DE-1910314

PATIENT
  Sex: Female

DRUGS (7)
  1. PHENPROCOUMON [Suspect]
     Active Substance: PHENPROCOUMON
     Indication: Protein C deficiency
     Route: 065
  2. METOPROLOL [Suspect]
     Active Substance: METOPROLOL
     Indication: Hypertension
     Route: 065
  3. TEDUGLUTIDE [Concomitant]
     Active Substance: TEDUGLUTIDE
     Indication: Short-bowel syndrome
     Route: 065
     Dates: start: 2015
  4. TEDUGLUTIDE [Concomitant]
     Active Substance: TEDUGLUTIDE
     Dosage: DOSE REDUCED; ADMINISTERED EVERY OTHER DAY
     Route: 065
  5. PREDNISOLONE [Concomitant]
     Active Substance: PREDNISOLONE
     Indication: Rheumatoid arthritis
     Route: 065
  6. RITUXIMAB [Concomitant]
     Active Substance: RITUXIMAB
     Indication: Rheumatoid arthritis
     Route: 065
  7. METHOTREXATE [Concomitant]
     Active Substance: METHOTREXATE
     Indication: Rheumatoid arthritis
     Route: 048

REACTIONS (4)
  - Dizziness [Recovered/Resolved]
  - Hypotension [Recovered/Resolved]
  - Bradycardia [Recovered/Resolved]
  - International normalised ratio decreased [Unknown]
